FAERS Safety Report 20323560 (Version 1)
Quarter: 2022Q1

REPORT INFORMATION
  Report Type: Spontaneous
  Country: US (occurrence: US)
  Receive Date: 20220111
  Receipt Date: 20220111
  Transmission Date: 20220423
  Serious: No
  Sender: FDA-Public Use
  Company Number: US-PFIZER INC-202200015916

PATIENT
  Age: 58 Year
  Sex: Female
  Weight: 99.79 kg

DRUGS (2)
  1. PAXLOVID [Suspect]
     Active Substance: NIRMATRELVIR\RITONAVIR
     Indication: COVID-19
     Dosage: 100 MG, 2X/DAY(10 COUNT)
     Route: 048
     Dates: start: 20220103
  2. PAXLOVID [Suspect]
     Active Substance: NIRMATRELVIR\RITONAVIR
     Dosage: 150 MG, 2X/DAY(20 COUNT)
     Route: 048
     Dates: start: 20220103

REACTIONS (2)
  - Taste disorder [Not Recovered/Not Resolved]
  - Dysgeusia [Not Recovered/Not Resolved]

NARRATIVE: CASE EVENT DATE: 20220103
